FAERS Safety Report 13330620 (Version 1)
Quarter: 2017Q1

REPORT INFORMATION
  Report Type: Spontaneous
  Country: US (occurrence: US)
  Receive Date: 20170314
  Receipt Date: 20170314
  Transmission Date: 20170428
  Serious: No
  Sender: FDA-Public Use
  Company Number: US-TEVA-741300USA

PATIENT
  Sex: Female

DRUGS (1)
  1. RISEDRONIC ACID [Suspect]
     Active Substance: RISEDRONIC ACID
     Dosage: UNK, UNKNOWN
     Route: 065

REACTIONS (3)
  - Drug effect decreased [Unknown]
  - Drug intolerance [Recovering/Resolving]
  - Dizziness [Recovering/Resolving]
